FAERS Safety Report 23921888 (Version 1)
Quarter: 2024Q2

REPORT INFORMATION
  Report Type: Report from Study
  Country: US (occurrence: US)
  Receive Date: 20240530
  Receipt Date: 20240530
  Transmission Date: 20240715
  Serious: Yes (Hospitalization, Other)
  Sender: FDA-Public Use
  Company Number: US-ABBVIE-5780682

PATIENT
  Age: 80 Year
  Sex: Male
  Weight: 74.842 kg

DRUGS (1)
  1. CREON [Suspect]
     Active Substance: PANCRELIPASE AMYLASE\PANCRELIPASE LIPASE\PANCRELIPASE PROTEASE
     Indication: Pancreatic carcinoma
     Dosage: FORM STRENGTH: 36000 UNIT, 3 PILLS WITH EACH MEAL AND 2 WITH SNACK
     Route: 048
     Dates: start: 202312

REACTIONS (1)
  - Exploratory operation [Not Recovered/Not Resolved]

NARRATIVE: CASE EVENT DATE: 20240527
